FAERS Safety Report 12084732 (Version 3)
Quarter: 2016Q2

REPORT INFORMATION
  Report Type: Spontaneous
  Country: JP (occurrence: JP)
  Receive Date: 20160217
  Receipt Date: 20160610
  Transmission Date: 20160815
  Serious: Yes (Other)
  Sender: FDA-Public Use
  Company Number: JP-SA-2016SA028878

PATIENT

DRUGS (1)
  1. MYSLEE [Suspect]
     Active Substance: ZOLPIDEM TARTRATE
     Dosage: SPLIT THE 10 MG TABLETS IN HALF ALONG THE SECANT LINE IN ORDER TO INGEST.
     Route: 048

REACTIONS (2)
  - Road traffic accident [Unknown]
  - Alcohol interaction [Unknown]
